FAERS Safety Report 7657521-8 (Version None)
Quarter: 2011Q3

REPORT INFORMATION
  Report Type: 
  Country: None (occurrence: None)
  Receive Date: 20110804
  Receipt Date: 20110727
  Transmission Date: 20111222
  Serious: Yes (Hospitalization, Other)
  Sender: FDA-Public Use
  Company Number: PHEH2005US03729

PATIENT
  Sex: Female
  Weight: 70.295 kg

DRUGS (96)
  1. ZOMETA [Suspect]
     Indication: BREAST CANCER METASTATIC
     Dosage: 4 MG, QMO
     Route: 042
     Dates: start: 20030901, end: 20050203
  2. FOSAMAX [Concomitant]
     Dosage: 20 MG, QD
     Route: 048
  3. AMBIEN [Concomitant]
     Dosage: 10 MG, UNK
  4. FOLIC ACID [Concomitant]
     Dosage: 1 MG, UNK
  5. METOCLOPRAMIDE [Concomitant]
  6. ZOCOR [Concomitant]
  7. ALENDRONATE SODIUM [Suspect]
     Indication: HYPERCALCAEMIA
     Route: 042
  8. LOTREL [Concomitant]
     Dosage: 5/10 MG
  9. HYDROCODONE [Concomitant]
     Dosage: UNK, UNK
  10. PROTONIX [Concomitant]
  11. ZEBETA [Concomitant]
     Dosage: UNK
  12. HYDROCORTISONE WITH LIDOCAINE HYDROCHLORIDE [Concomitant]
  13. POTASSIUM CHLORIDE [Concomitant]
  14. MORPHINE SULFATE [Concomitant]
  15. CITALOPRAM HYDROBROMIDE [Concomitant]
  16. NAPROXEN [Concomitant]
  17. PREDNISONE [Concomitant]
  18. FLUCONAZOLE [Concomitant]
  19. EVISTA [Concomitant]
  20. MOBIC [Concomitant]
  21. COMPRO [Concomitant]
  22. BIAFINE [Concomitant]
  23. ZOVIRAX [Concomitant]
  24. ZOLOFT [Concomitant]
     Dosage: 50 MG, UNK
  25. GEMZAR [Concomitant]
     Dosage: UNK
     Dates: start: 20050501
  26. NEULASTA [Concomitant]
  27. STOOL SOFTENER [Concomitant]
     Dosage: UNK
  28. FUROSEMIDE [Concomitant]
  29. SIMVASTATIN [Concomitant]
  30. EFFEXOR XR [Concomitant]
  31. FENTANYL [Concomitant]
  32. MELOXICAM [Concomitant]
  33. MIRTAZAPINE [Concomitant]
  34. GABAPENTIN [Concomitant]
  35. MEGESTROL ACETATE [Concomitant]
  36. SULFAMETHOXAZOLE AND TRIMETHOPRIM [Concomitant]
  37. NEURONTIN [Concomitant]
  38. PROZAC [Concomitant]
  39. TAMOXIFEN CITRATE [Concomitant]
     Indication: BREAST CANCER
     Dosage: 10 MG, BID
     Route: 048
     Dates: start: 20020601, end: 20030901
  40. FASLODEX [Concomitant]
     Dosage: 250 MG, QMO
     Route: 042
     Dates: start: 20040201, end: 20050301
  41. FERROUS SULFATE TAB [Concomitant]
  42. CALCIMATE PLUS [Concomitant]
  43. PROPOXYPHENE NAPSYLATE W/ ACETAMINOPHEN [Concomitant]
  44. SILVER SULFADIAZINE [Concomitant]
  45. OXYCODONE HCL AND ACETAMINOPHEN [Concomitant]
  46. HYDROMORPHONE HCL [Concomitant]
  47. AROMASIN [Concomitant]
  48. METHADONE HYDROCHLORIDE [Concomitant]
  49. WELLBUTRIN XL [Concomitant]
  50. CEPHALEXIN [Concomitant]
  51. GEMCITABINE [Concomitant]
  52. ETODOLAC [Concomitant]
  53. KYTRIL [Concomitant]
  54. ATENOLOL [Concomitant]
     Dosage: 50 MG, QD
     Route: 048
  55. NEXIUM [Concomitant]
     Dosage: 40 MG, UNK
  56. XELODA [Concomitant]
  57. DEXAMETHASONE [Concomitant]
  58. CELEBREX [Concomitant]
  59. LYRICA [Concomitant]
  60. CIALIS [Concomitant]
  61. TERCONAZOLE [Concomitant]
  62. LETROZOLE [Concomitant]
  63. PROCHLORPERAZINE [Concomitant]
  64. FEMARA [Concomitant]
     Dosage: 2.5 MG, BID
     Route: 048
     Dates: start: 20030901, end: 20040201
  65. LIPITOR [Concomitant]
     Dosage: 40 MG, UNK
  66. PROVOCHOLINE [Concomitant]
     Dosage: UNK
  67. COMPAZINE [Concomitant]
  68. AZITHROMYCIN [Concomitant]
  69. ACTONEL [Concomitant]
  70. LEXAPRO [Concomitant]
  71. OMEPRAZOLE [Concomitant]
  72. BETAMETHASONE DIPROPIONATE W/CLOTRIMAZOLE [Concomitant]
  73. MUPIROCIN [Concomitant]
  74. NAVELBINE [Concomitant]
  75. CIPROFLAXACIN [Concomitant]
  76. TEMAZEPAM [Concomitant]
  77. XANAX [Concomitant]
     Dosage: 0.25 MG, UNK
  78. MULTI-VITAMINS [Concomitant]
  79. MIRALAX [Concomitant]
     Dosage: UNK
  80. LEVAQUIN [Concomitant]
  81. NYSTATIN [Concomitant]
  82. CHOLINE MAGNESIUM TRISALICYLATE [Concomitant]
  83. AVELOX [Concomitant]
  84. ONDANSETRON [Concomitant]
  85. DOXORUBICIN HCL [Concomitant]
  86. ARIMIDEX [Suspect]
  87. TAXOTERE [Concomitant]
  88. ZOFRAN [Concomitant]
  89. ALPRAZOLAM [Concomitant]
  90. GLYCOLAX [Concomitant]
  91. METRONIDAZOLE [Concomitant]
  92. IODOQUINOL [Concomitant]
  93. BUPROPION HCL [Concomitant]
  94. CLOTRIMAZOLE [Concomitant]
  95. HORMONES [Concomitant]
  96. METHYLPREDNISOLONE [Concomitant]

REACTIONS (80)
  - PAIN [None]
  - METASTASES TO BONE [None]
  - ARTHRALGIA [None]
  - OEDEMA PERIPHERAL [None]
  - EXOSTOSIS [None]
  - BONE PAIN [None]
  - HYPOAESTHESIA [None]
  - BACK PAIN [None]
  - DRY EYE [None]
  - MICTURITION URGENCY [None]
  - PLANTAR FASCIITIS [None]
  - ECZEMA [None]
  - WHITE BLOOD CELL COUNT INCREASED [None]
  - ORAL CAVITY FISTULA [None]
  - HYPOAESTHESIA ORAL [None]
  - OESOPHAGEAL CANDIDIASIS [None]
  - DYSPNOEA [None]
  - MUSCULAR WEAKNESS [None]
  - RECTAL FISSURE [None]
  - ANGIOFIBROMA [None]
  - VARICOSE VEIN [None]
  - TOOTH LOSS [None]
  - IMPAIRED HEALING [None]
  - INJURY [None]
  - ANXIETY [None]
  - SCAR [None]
  - NUCLEAR MAGNETIC RESONANCE IMAGING ABNORMAL [None]
  - EYE PAIN [None]
  - FACE INJURY [None]
  - DYSPLASTIC NAEVUS [None]
  - OSTEONECROSIS OF JAW [None]
  - EATING DISORDER [None]
  - ORAL DISORDER [None]
  - GINGIVAL PAIN [None]
  - PHYSICAL DISABILITY [None]
  - TOOTH INFECTION [None]
  - WOUND INFECTION STAPHYLOCOCCAL [None]
  - MITRAL VALVE PROLAPSE [None]
  - POSTURE ABNORMAL [None]
  - AREFLEXIA [None]
  - MEMORY IMPAIRMENT [None]
  - FAECAL INCONTINENCE [None]
  - CYSTOCELE [None]
  - RECTAL HAEMORRHAGE [None]
  - NIGHT SWEATS [None]
  - OSTEITIS [None]
  - URINARY INCONTINENCE [None]
  - RECTAL ABSCESS [None]
  - PROCTALGIA [None]
  - CELLULITIS [None]
  - INGROWING NAIL [None]
  - PYREXIA [None]
  - NEURALGIA [None]
  - TOOTHACHE [None]
  - OSTEOARTHRITIS [None]
  - SEROMA [None]
  - LUMBAR RADICULOPATHY [None]
  - RECTOCELE [None]
  - STAPHYLOCOCCAL INFECTION [None]
  - URINARY TRACT INFECTION [None]
  - MALIGNANT MELANOMA [None]
  - MAJOR DEPRESSION [None]
  - ORAL MUCOSAL EXFOLIATION [None]
  - SPINAL OSTEOARTHRITIS [None]
  - WALKING DISABILITY [None]
  - INTERVERTEBRAL DISC PROTRUSION [None]
  - CONSTIPATION [None]
  - ANAEMIA [None]
  - SEBORRHOEIC KERATOSIS [None]
  - LICHENOID KERATOSIS [None]
  - HAEMANGIOMA [None]
  - PERIPHERAL ARTERIAL OCCLUSIVE DISEASE [None]
  - HAEMORRHOIDS [None]
  - BONE DISORDER [None]
  - EMOTIONAL DISTRESS [None]
  - PARAESTHESIA [None]
  - URINARY RETENTION [None]
  - PAIN IN EXTREMITY [None]
  - PURULENT DISCHARGE [None]
  - EXCESSIVE GRANULATION TISSUE [None]
